FAERS Safety Report 8163810-3 (Version None)
Quarter: 2012Q1

REPORT INFORMATION
  Report Type: 
  Country: None (occurrence: None)
  Receive Date: 20120224
  Receipt Date: 20120221
  Transmission Date: 20120608
  Serious: Yes (Hospitalization, Congenital Anomaly, Other)
  Sender: FDA-Public Use
  Company Number: US-PFIZER INC-2011158646

PATIENT
  Sex: Male
  Weight: 2 kg

DRUGS (8)
  1. EFFEXOR [Suspect]
     Indication: DEPRESSION
     Dosage: 150 MG, 1X/DAY
     Route: 064
  2. ACYCLOVIR [Concomitant]
     Indication: GENITAL HERPES
     Dosage: 400 MG, 2X/DAY
     Route: 064
  3. BUSPAR [Concomitant]
     Indication: DEPRESSION
     Dosage: UNK
     Route: 064
  4. NPH INSULIN [Concomitant]
     Indication: TYPE 2 DIABETES MELLITUS
     Dosage: 72 UNITS AT NIGHT.
     Route: 064
  5. AMPICILLIN [Concomitant]
     Dosage: UNK
     Route: 064
  6. IRON [Concomitant]
     Route: 064
  7. HUMALOG [Concomitant]
     Indication: TYPE 2 DIABETES MELLITUS
     Dosage: 29 UNITS WITH BREAK FAST, 22 UNITS WITH LUNCH, 45 UNITS WITH DINNER
     Route: 064
  8. MULTI-VITAMINS [Concomitant]
     Dosage: UNK
     Route: 064

REACTIONS (11)
  - PREMATURE BABY [None]
  - CRYPTORCHISM [None]
  - SINGLE UMBILICAL ARTERY [None]
  - ARRHYTHMIA [None]
  - MATERNAL EXPOSURE TIMING UNSPECIFIED [None]
  - TALIPES [None]
  - HYPOGLYCAEMIA NEONATAL [None]
  - HYPERBILIRUBINAEMIA NEONATAL [None]
  - INGUINAL HERNIA [None]
  - LARYNGOSPASM [None]
  - CONGENITAL TORTICOLLIS [None]
